FAERS Safety Report 18981692 (Version 2)
Quarter: 2021Q1

REPORT INFORMATION
  Report Type: Report from Study
  Country: ID (occurrence: ID)
  Receive Date: 20210308
  Receipt Date: 20210318
  Transmission Date: 20210420
  Serious: Yes (Death, Other)
  Sender: FDA-Public Use
  Company Number: ID-ASTRAZENECA-2021A071180

PATIENT
  Age: 21339 Day
  Sex: Male

DRUGS (1)
  1. TAGRISSO [Suspect]
     Active Substance: OSIMERTINIB
     Indication: NON-SMALL CELL LUNG CANCER
     Route: 048
     Dates: start: 20200903, end: 202101

REACTIONS (8)
  - Condition aggravated [Not Recovered/Not Resolved]
  - Respiratory failure [Fatal]
  - Pulmonary oedema [Not Recovered/Not Resolved]
  - Pneumonia [Fatal]
  - Malignant neoplasm progression [Fatal]
  - Pleural effusion [Fatal]
  - Dyspnoea [Not Recovered/Not Resolved]
  - Inability to afford medication [Unknown]

NARRATIVE: CASE EVENT DATE: 20210225
